FAERS Safety Report 21065176 (Version 1)
Quarter: 2022Q3

REPORT INFORMATION
  Report Type: Spontaneous
  Country: US (occurrence: US)
  Receive Date: 20220711
  Receipt Date: 20220711
  Transmission Date: 20221026
  Serious: No
  Sender: FDA-Public Use
  Company Number: US-LUPIN PHARMACEUTICALS INC.-2022-09303

PATIENT
  Sex: Male

DRUGS (1)
  1. FAMOTIDINE [Suspect]
     Active Substance: FAMOTIDINE
     Indication: Dyspepsia
     Dosage: UNK, PRN (AS NEEDED)
     Route: 048

REACTIONS (3)
  - Product dose omission issue [Unknown]
  - Product availability issue [Unknown]
  - No adverse event [Unknown]
